FAERS Safety Report 7827899-0 (Version None)
Quarter: 2011Q4

REPORT INFORMATION
  Report Type: 
  Country: None (occurrence: None)
  Receive Date: 20111019
  Receipt Date: 20111007
  Transmission Date: 20120403
  Serious: Yes (Death, Life-Threatening)
  Sender: FDA-Public Use
  Company Number: LEO-2011-00656

PATIENT
  Age: 80 Year
  Sex: Female

DRUGS (8)
  1. ZOFRAN [Concomitant]
  2. AMIODARONE HCL [Concomitant]
  3. INNOHEP [Suspect]
     Indication: SURGERY
     Dosage: SUBCUTANEOUS
     Route: 058
     Dates: start: 20110520
  4. LEXAPRO [Concomitant]
  5. NEXIUM [Concomitant]
  6. BUMETANIDE [Concomitant]
  7. WARFARIN SODIUM [Suspect]
     Indication: ATRIAL FIBRILLATION
     Dosage: ORAL
     Route: 048
  8. SLOW-K [Concomitant]

REACTIONS (9)
  - FALL [None]
  - ANAEMIA [None]
  - RESPIRATORY TRACT INFECTION [None]
  - PERIPHERAL ISCHAEMIA [None]
  - ATRIAL FIBRILLATION [None]
  - RENAL IMPAIRMENT [None]
  - THROMBOCYTOPENIA [None]
  - INTESTINAL MASS [None]
  - ARTERIAL THROMBOSIS LIMB [None]
